FAERS Safety Report 16017320 (Version 1)
Quarter: 2019Q1

REPORT INFORMATION
  Report Type: Spontaneous
  Country: CN (occurrence: CN)
  Receive Date: 20190228
  Receipt Date: 20190228
  Transmission Date: 20190418
  Serious: Yes (Other)
  Sender: FDA-Public Use
  Company Number: CN-PFIZER INC-2019085998

PATIENT

DRUGS (3)
  1. TYGACIL [Suspect]
     Active Substance: TIGECYCLINE
  2. SULPERAZON [Suspect]
     Active Substance: CEFOPERAZONE SODIUM\SULBACTAM SODIUM
  3. POLYMYXIN [Suspect]
     Active Substance: POLYMYXIN

REACTIONS (1)
  - Empyema [Unknown]
